FAERS Safety Report 22942899 (Version 2)
Quarter: 2023Q4

REPORT INFORMATION
  Report Type: Spontaneous
  Country: US (occurrence: US)
  Receive Date: 20230914
  Receipt Date: 20231109
  Transmission Date: 20240110
  Serious: No
  Sender: FDA-Public Use
  Company Number: US-JNJFOC-20230915371

PATIENT
  Sex: Male

DRUGS (2)
  1. TYLENOL [Suspect]
     Active Substance: ACETAMINOPHEN
     Indication: Headache
     Dosage: FORM-CAPSULE, FIRST, SECOND AND THIRD TRIMESTER
     Route: 064
     Dates: start: 201112, end: 201209
  2. TYLENOL [Suspect]
     Active Substance: ACETAMINOPHEN
     Indication: Muscle spasms

REACTIONS (2)
  - Attention deficit hyperactivity disorder [Unknown]
  - Foetal exposure during pregnancy [Unknown]

NARRATIVE: CASE EVENT DATE: 20190101
